FAERS Safety Report 20069511 (Version 4)
Quarter: 2022Q1

REPORT INFORMATION
  Report Type: Report from Study
  Country: NL (occurrence: NL)
  Receive Date: 20211115
  Receipt Date: 20220103
  Transmission Date: 20220423
  Serious: Yes (Other)
  Sender: FDA-Public Use
  Company Number: NL-AMGEN-NLDNI2021174886

PATIENT
  Age: 61 Year
  Sex: Female

DRUGS (1)
  1. AMG-510 [Suspect]
     Active Substance: AMG-510
     Indication: Non-small cell lung cancer
     Dosage: 960 MILLIGRAM, QD
     Route: 065
     Dates: start: 202107, end: 20211104

REACTIONS (2)
  - Non-small cell lung cancer [Unknown]
  - Therapeutic product effect incomplete [Unknown]

NARRATIVE: CASE EVENT DATE: 20211009
